FAERS Safety Report 5916874-9 (Version None)
Quarter: 2008Q4

REPORT INFORMATION
  Report Type: 
  Country: None (occurrence: None)
  Receive Date: 20081013
  Receipt Date: 20081001
  Transmission Date: 20090506
  Serious: Yes (Hospitalization)
  Sender: FDA-Public Use
  Company Number: JP-ROCHE-575815

PATIENT
  Sex: Female
  Weight: 60 kg

DRUGS (13)
  1. XELODA [Suspect]
     Indication: BREAST CANCER METASTATIC
     Dosage: DRUG NAME REPORTED: XELODA 300
     Route: 048
     Dates: start: 20080519, end: 20080624
  2. XELODA [Suspect]
     Route: 048
     Dates: start: 20060601, end: 20070301
  3. XELODA [Suspect]
     Dosage: TWO WEEKS ADMINISTARTION FOLLOWED BY ONE WEEK REST
     Route: 048
     Dates: start: 20080519, end: 20080624
  4. TAXOTERE [Suspect]
     Indication: BREAST CANCER METASTATIC
     Route: 041
     Dates: start: 20080519, end: 20080610
  5. NAVELBINE [Concomitant]
     Route: 042
     Dates: start: 20070501, end: 20071001
  6. TAXOL [Concomitant]
     Route: 041
     Dates: start: 20071101, end: 20080401
  7. PYDOXAL [Concomitant]
     Route: 048
     Dates: start: 20080519, end: 20080624
  8. DECADRON [Concomitant]
     Route: 041
     Dates: start: 20080519, end: 20080610
  9. KYTRIL [Concomitant]
     Route: 041
     Dates: start: 20080519, end: 20080610
  10. FAMOTIDINE [Concomitant]
     Route: 041
     Dates: start: 20080519, end: 20080610
  11. LOXONIN [Concomitant]
     Route: 048
  12. ALLELOCK [Concomitant]
     Route: 048
  13. NEOMALLERMIN-TR [Concomitant]
     Dosage: DRUG NAME: NEOMALLERMIN
     Route: 048

REACTIONS (2)
  - CONSTIPATION [None]
  - RECTAL ULCER [None]
